FAERS Safety Report 9533102 (Version 2)
Quarter: 2014Q1

REPORT INFORMATION
  Report Type: Spontaneous
  Country: US (occurrence: None)
  Receive Date: 20130916
  Receipt Date: 20140204
  Transmission Date: 20141002
  Serious: Yes (Other)
  Sender: FDA-Public Use
  Company Number: 2013-US-000308

PATIENT
  Age: 30 Year
  Sex: Female
  Weight: 68 kg

DRUGS (1)
  1. XYREM [Suspect]
     Indication: LYME DISEASE
     Route: 048
     Dates: start: 20080612

REACTIONS (12)
  - Post-traumatic stress disorder [None]
  - Condition aggravated [None]
  - Agoraphobia [None]
  - Depression [None]
  - Bruxism [None]
  - Lyme disease [None]
  - Disease recurrence [None]
  - Bartonellosis [None]
  - Decreased appetite [None]
  - Nightmare [None]
  - Anxiety [None]
  - Anhedonia [None]
